FAERS Safety Report 23947557 (Version 1)
Quarter: 2024Q2

REPORT INFORMATION
  Report Type: Other
  Country: CN (occurrence: CN)
  Receive Date: 20240606
  Receipt Date: 20240606
  Transmission Date: 20240716
  Serious: Yes (Hospitalization, Other)
  Sender: FDA-Public Use
  Company Number: CN-Genus_Lifesciences-USA-POI0580202400137

PATIENT
  Age: 45 Year
  Sex: Male

DRUGS (2)
  1. YOSPRALA [Suspect]
     Active Substance: ASPIRIN\OMEPRAZOLE
     Indication: Pain management
     Dosage: UNKNOWN
     Route: 065
     Dates: start: 2024
  2. CLOPIDOGREL [Concomitant]
     Active Substance: CLOPIDOGREL BISULFATE
     Indication: Anticoagulant therapy
     Dosage: UNKNOWN
     Route: 065
     Dates: start: 2024

REACTIONS (3)
  - Shock haemorrhagic [Recovered/Resolved]
  - Haematochezia [Recovered/Resolved]
  - Diverticulum intestinal haemorrhagic [Recovered/Resolved]

NARRATIVE: CASE EVENT DATE: 20240101
